FAERS Safety Report 7519663-7 (Version None)
Quarter: 2011Q2

REPORT INFORMATION
  Report Type: 
  Country: None (occurrence: None)
  Receive Date: 20110602
  Receipt Date: 20110527
  Transmission Date: 20111010
  Serious: Yes (Other)
  Sender: FDA-Public Use
  Company Number: B0722971A

PATIENT
  Age: 65 Year
  Sex: Male

DRUGS (1)
  1. DUTASTERIDE [Suspect]
     Route: 048

REACTIONS (1)
  - SEMEN DISCOLOURATION [None]
